FAERS Safety Report 19911665 (Version 1)
Quarter: 2021Q4

REPORT INFORMATION
  Report Type: Spontaneous
  Country: KR (occurrence: KR)
  Receive Date: 20211004
  Receipt Date: 20211004
  Transmission Date: 20220303
  Serious: Yes (Other)
  Sender: FDA-Public Use
  Company Number: KR-GLAXOSMITHKLINE-KR2021APC203279

PATIENT
  Age: 35 Year
  Sex: Male
  Weight: 65 kg

DRUGS (7)
  1. KIVEXA [Suspect]
     Active Substance: ABACAVIR SULFATE\LAMIVUDINE
     Indication: HIV infection
     Dosage: 1 MG
     Route: 048
     Dates: start: 20120326
  2. TIROPRAMIDE [Concomitant]
     Active Substance: TIROPRAMIDE
     Indication: Gastritis
     Dosage: UNK
     Route: 030
     Dates: start: 20210404, end: 20210404
  3. KETOROLAC [Concomitant]
     Active Substance: KETOROLAC TROMETHAMINE
     Indication: Gastritis
     Dosage: UNK
     Route: 042
     Dates: start: 20160404, end: 20160404
  4. ISONIAZID [Concomitant]
     Active Substance: ISONIAZID
     Indication: Tuberculosis
     Dosage: UNK
     Route: 048
     Dates: start: 20151001, end: 20160706
  5. GRANISETRON [Concomitant]
     Active Substance: GRANISETRON
     Indication: Gastritis
     Dosage: UNK
     Route: 042
     Dates: start: 20160404, end: 20160404
  6. LOPERAMIDE OXIDE [Concomitant]
     Active Substance: LOPERAMIDE OXIDE
     Indication: Gastritis
     Dosage: UNK
     Route: 048
     Dates: start: 20160404, end: 20160408
  7. PHLOROGLUCINOL [Concomitant]
     Active Substance: PHLOROGLUCINOL
     Indication: Gastritis
     Dosage: UNK
     Route: 048
     Dates: start: 20160404, end: 20160408

REACTIONS (3)
  - Tuberculosis [Recovered/Resolved]
  - Gastroenteritis [Recovered/Resolved]
  - Pharyngitis [Recovered/Resolved]

NARRATIVE: CASE EVENT DATE: 20150323
